FAERS Safety Report 9758375 (Version 1)
Quarter: 2013Q4

REPORT INFORMATION
  Report Type: Spontaneous
  Country: US (occurrence: None)
  Receive Date: 20131213
  Receipt Date: 20131213
  Transmission Date: 20140711
  Serious: Yes (Other)
  Sender: FDA-Public Use
  Company Number: None

PATIENT
  Sex: Female
  Weight: 80.65 kg

DRUGS (3)
  1. CYTARABINE [Suspect]
  2. DAUNORUBICIN [Suspect]
  3. DEXAMETHASONE [Suspect]

REACTIONS (2)
  - Myelodysplastic syndrome [None]
  - Refractory anaemia with an excess of blasts [None]
